FAERS Safety Report 23514829 (Version 2)
Quarter: 2024Q2

REPORT INFORMATION
  Report Type: Spontaneous
  Country: DE (occurrence: DE)
  Receive Date: 20240212
  Receipt Date: 20240410
  Transmission Date: 20240716
  Serious: No
  Sender: FDA-Public Use
  Company Number: DE-MEN-2024-090237

PATIENT
  Sex: Male

DRUGS (1)
  1. RANEXA [Suspect]
     Active Substance: RANOLAZINE
     Indication: Angina pectoris
     Dosage: 750 MG, QD
     Route: 048

REACTIONS (3)
  - General physical health deterioration [Recovering/Resolving]
  - Drug ineffective [Recovered/Resolved]
  - Product quality issue [Unknown]
